FAERS Safety Report 7925823-3 (Version None)
Quarter: 2011Q4

REPORT INFORMATION
  Report Type: 
  Country: None (occurrence: None)
  Receive Date: 20111118
  Receipt Date: 20110413
  Transmission Date: 20120403
  Serious: No
  Sender: FDA-Public Use
  Company Number: US-AMGEN-USASP2011014217

PATIENT
  Age: 58 Year
  Sex: Female
  Weight: 73.5 kg

DRUGS (1)
  1. ENBREL [Suspect]
     Indication: RHEUMATOID ARTHRITIS
     Dosage: 50 MG, QWK
     Route: 058
     Dates: start: 20110201

REACTIONS (8)
  - DYSPEPSIA [None]
  - INJECTION SITE REACTION [None]
  - FATIGUE [None]
  - HEADACHE [None]
  - INJECTION SITE HAEMATOMA [None]
  - JOINT SWELLING [None]
  - HELICOBACTER INFECTION [None]
  - INJECTION SITE MASS [None]
